FAERS Safety Report 24576994 (Version 1)
Quarter: 2024Q4

REPORT INFORMATION
  Report Type: Spontaneous
  Country: CA (occurrence: CA)
  Receive Date: 20241104
  Receipt Date: 20241104
  Transmission Date: 20250114
  Serious: Yes (Other)
  Sender: PFIZER
  Company Number: CA-PFIZER INC-2019389099

PATIENT
  Age: 59 Year
  Sex: Female

DRUGS (21)
  1. XELJANZ [Suspect]
     Active Substance: TOFACITINIB CITRATE
     Indication: Colitis ulcerative
     Dosage: 10 MG, 2X/DAY
     Route: 048
     Dates: start: 20190812, end: 201912
  2. XELJANZ [Suspect]
     Active Substance: TOFACITINIB CITRATE
     Dosage: 5 MG, 2X/DAY
     Route: 048
     Dates: start: 2020, end: 202002
  3. XELJANZ [Suspect]
     Active Substance: TOFACITINIB CITRATE
     Dosage: 10 MG, 2X/DAY
     Route: 048
     Dates: start: 202002, end: 2021
  4. XELJANZ [Suspect]
     Active Substance: TOFACITINIB CITRATE
     Dosage: 5 MG, 2X/DAY
     Route: 048
     Dates: start: 2021, end: 2024
  5. AURO ROSUVASTATIN [Concomitant]
     Indication: Blood cholesterol abnormal
     Dosage: 2.5 MG, DAILY
  6. PREDNISONE [Concomitant]
     Active Substance: PREDNISONE
     Indication: Colitis
     Dosage: 5 MG, AS NEEDED
  7. ACTONEL [Concomitant]
     Active Substance: RISEDRONATE SODIUM
     Dosage: 35 MG, WEEKLY
  8. COENZYME Q10 [Concomitant]
     Active Substance: DIETARY SUPPLEMENT\UBIDECARENONE
     Dosage: 100 MG, DAILY
  9. CALCIUM [Concomitant]
     Active Substance: CALCIUM
     Dosage: 600 MG, DAILY
  10. DEXILANT [Concomitant]
     Active Substance: DEXLANSOPRAZOLE
     Indication: Abdominal discomfort
     Dosage: 60 MG, DAILY
  11. FUROSEMIDE [Concomitant]
     Active Substance: FUROSEMIDE
     Indication: Peripheral swelling
     Dosage: 20 MG, AS NEEDED
  12. HUMULIN N [Concomitant]
     Active Substance: INSULIN HUMAN
     Indication: Diabetes mellitus
     Dosage: 100 UNITS/ML, DAILY
  13. IRON [Concomitant]
     Active Substance: IRON
     Dosage: UNK
  14. LASIX [Concomitant]
     Active Substance: FUROSEMIDE
     Indication: Peripheral swelling
     Dosage: 20 MG, AS NEEDED
  15. METAMUCIL [Concomitant]
     Active Substance: PLANTAGO SEED
     Dosage: DAILY
  16. NEXIUM I.V. [Concomitant]
     Active Substance: ESOMEPRAZOLE SODIUM
     Indication: Abdominal discomfort
     Dosage: 40 MG, AS NEEDED
  17. NOVORAPID [Concomitant]
     Active Substance: INSULIN ASPART
     Indication: Diabetes mellitus
     Dosage: 100 UNITS/ML, DAILY
  18. MESALAMINE [Concomitant]
     Active Substance: MESALAMINE
     Dosage: 2 G, DAILY
     Route: 048
  19. SYNTHROID [Concomitant]
     Active Substance: LEVOTHYROXINE SODIUM
     Indication: Thyroid disorder
     Dosage: 88 MG, DAILY
  20. VITAMIN D3 [Concomitant]
     Active Substance: CHOLECALCIFEROL
     Dosage: 5000 MG, DAILY
  21. VITAMIN B12 [Concomitant]
     Active Substance: CYANOCOBALAMIN
     Dosage: 1200 MG, DAILY

REACTIONS (8)
  - Dysplasia [Unknown]
  - Gastrointestinal dysplasia [Unknown]
  - Drug ineffective [Unknown]
  - Condition aggravated [Recovering/Resolving]
  - Hyperhidrosis [Not Recovered/Not Resolved]
  - COVID-19 [Unknown]
  - Headache [Unknown]
  - Fatigue [Unknown]

NARRATIVE: CASE EVENT DATE: 20190101
